FAERS Safety Report 9768184 (Version 2)
Quarter: 2013Q4

REPORT INFORMATION
  Report Type: Report from Study
  Country: AR (occurrence: AR)
  Receive Date: 20131217
  Receipt Date: 20131217
  Transmission Date: 20140711
  Serious: Yes (Hospitalization, Other)
  Sender: FDA-Public Use
  Company Number: PHHY2013AR132758

PATIENT
  Sex: Female

DRUGS (3)
  1. DIOVAN [Suspect]
     Dosage: 160 MG, DAILY
     Route: 048
  2. LEVOTHYROXINE [Concomitant]
     Dosage: 150 MCG 3 DAYS A WEEK AND 100 MCG THE REST OF THE DAYS, UNK
  3. AMLODIPINE [Concomitant]
     Dosage: UNK UKN, DAILY

REACTIONS (4)
  - Blood glucose increased [Unknown]
  - Blood pressure increased [Unknown]
  - Arterial insufficiency [Unknown]
  - Malaise [Unknown]
